FAERS Safety Report 7410762-7 (Version None)
Quarter: 2011Q2

REPORT INFORMATION
  Report Type: 
  Country: None (occurrence: None)
  Receive Date: 20110413
  Receipt Date: 20110331
  Transmission Date: 20111010
  Serious: Yes (Death, Hospitalization, Other)
  Sender: FDA-Public Use
  Company Number: US-ELI_LILLY_AND_COMPANY-US201012003785

PATIENT
  Sex: Female

DRUGS (2)
  1. FORTEO [Suspect]
     Indication: OSTEOPOROSIS
     Dosage: 20 UG, DAILY (1/D)
     Route: 058
     Dates: start: 20090901
  2. FORTEO [Suspect]
     Dosage: 20 UG, QD
     Route: 058

REACTIONS (11)
  - NIGHT SWEATS [None]
  - CONFUSIONAL STATE [None]
  - TEMPORAL ARTERITIS [None]
  - INCONTINENCE [None]
  - HAEMORRHAGIC STROKE [None]
  - HEADACHE [None]
  - CEREBROVASCULAR ACCIDENT [None]
  - ARTERIAL HAEMORRHAGE [None]
  - MOVEMENT DISORDER [None]
  - HEMIPARESIS [None]
  - APHONIA [None]
